FAERS Safety Report 9884924 (Version 1)
Quarter: 2014Q1

REPORT INFORMATION
  Report Type: Spontaneous
  Country: US (occurrence: US)
  Receive Date: 20140210
  Receipt Date: 20140210
  Transmission Date: 20141002
  Serious: No
  Sender: FDA-Public Use
  Company Number: US-ALLERGAN-1318458US

PATIENT
  Sex: Female

DRUGS (4)
  1. BOTOX COSMETIC [Suspect]
     Indication: SKIN WRINKLING
     Dosage: 12 UNITS, SINGLE
     Route: 030
     Dates: start: 20130701, end: 20130701
  2. BOTOX COSMETIC [Suspect]
     Dosage: 12 UNITS, SINGLE
     Route: 030
     Dates: start: 20130624, end: 20130624
  3. BOTOX COSMETIC [Suspect]
     Dosage: 28 UNITS, SINGLE
     Route: 030
     Dates: start: 20130620, end: 20130620
  4. BETA BLOCKER [Concomitant]
     Indication: MIGRAINE
     Dosage: UNK
     Dates: start: 201306, end: 201306

REACTIONS (2)
  - Wrong technique in drug usage process [Unknown]
  - Therapeutic response decreased [Unknown]
